FAERS Safety Report 8440383-9 (Version None)
Quarter: 2012Q2

REPORT INFORMATION
  Report Type: 
  Country: None (occurrence: None)
  Receive Date: 20120615
  Receipt Date: 20120601
  Transmission Date: 20120825
  Serious: Yes (Life-Threatening, Hospitalization)
  Sender: FDA-Public Use
  Company Number: ES-ROCHE-768843

PATIENT
  Sex: Female
  Weight: 63.5 kg

DRUGS (27)
  1. CELLCEPT [Suspect]
     Dosage: CURRENT DOSE: 2000 MG
     Route: 065
  2. PREDNISONE TAB [Concomitant]
  3. PREDNISONE TAB [Concomitant]
  4. PRAVASTATIN [Concomitant]
  5. AMLODIPINE BESYLATE [Concomitant]
  6. LORAZEPAM [Concomitant]
  7. CELLCEPT [Suspect]
     Indication: ANTI-NEUTROPHIL CYTOPLASMIC ANTIBODY POSITIVE VASCULITIS
     Dosage: PREVIOUS DOSE WAS 3000 MG
     Route: 065
  8. PREDNISONE TAB [Concomitant]
  9. NITROGLYCERIN [Concomitant]
  10. OMEPRAZOLE [Concomitant]
  11. CLOPIDOGREL [Concomitant]
  12. CELLCEPT [Suspect]
  13. CELLCEPT [Suspect]
  14. BISOPROLOL FUMARATE [Concomitant]
  15. ENALAPRIL [Concomitant]
  16. ASPIRIN [Concomitant]
  17. AZATHIOPRINE [Concomitant]
  18. CITALOPRAM HYDROBROMIDE [Concomitant]
  19. PREDNISONE TAB [Concomitant]
  20. AZATHIOPRINE [Concomitant]
  21. ENOXAPARIN [Concomitant]
  22. CELLCEPT [Suspect]
  23. ALENDRONATE SODIUM [Concomitant]
     Dosage: 70 MG C/ WEEK
  24. COTRIM [Concomitant]
  25. PREDNISONE TAB [Concomitant]
  26. FUROSEMIDE [Concomitant]
  27. CALCIUM/VITAMIN D [Concomitant]

REACTIONS (5)
  - URINARY TRACT INFECTION ENTEROCOCCAL [None]
  - CYTOMEGALOVIRUS INFECTION [None]
  - LUNG INFILTRATION [None]
  - URINARY TRACT INFECTION [None]
  - PYREXIA [None]
